FAERS Safety Report 8820539 (Version 1)
Quarter: 2012Q4

REPORT INFORMATION
  Report Type: 
  Country: FR (occurrence: FR)
  Receive Date: 20121002
  Receipt Date: 20121002
  Transmission Date: 20130627
  Serious: Yes (Death, Life-Threatening, Hospitalization)
  Sender: FDA-Public Use
  Company Number: FR-ASTRAZENECA-2012SE75290

PATIENT
  Age: 960 Month
  Sex: Female
  Weight: 63 kg

DRUGS (11)
  1. CRESTOR [Suspect]
     Route: 048
     Dates: start: 201111, end: 20120509
  2. IMUREL [Suspect]
     Route: 048
     Dates: start: 20120314, end: 20120509
  3. METOJECT [Suspect]
     Dates: end: 20120314
  4. METOJECT [Suspect]
     Dates: start: 20120315, end: 20120509
  5. CORDARONE [Suspect]
     Route: 048
     Dates: start: 201111, end: 20120509
  6. CORTANCYL [Concomitant]
  7. AMAREL [Concomitant]
  8. PLAVIX [Concomitant]
  9. MINISINTRON [Concomitant]
  10. LASILIX [Concomitant]
  11. SPECIAFOLDINE [Concomitant]

REACTIONS (9)
  - Hepatic failure [Fatal]
  - Jaundice [Fatal]
  - Renal failure [Unknown]
  - Multi-organ failure [Fatal]
  - Coagulation factor V level decreased [Fatal]
  - Leukopenia [Fatal]
  - Cholangitis [Unknown]
  - Blood thyroid stimulating hormone decreased [Unknown]
  - Thyroxine increased [Unknown]
